FAERS Safety Report 8246036-4 (Version None)
Quarter: 2012Q1

REPORT INFORMATION
  Report Type: 
  Country: None (occurrence: None)
  Receive Date: 20120330
  Receipt Date: 20120319
  Transmission Date: 20120608
  Serious: No
  Sender: FDA-Public Use
  Company Number: JP-JNJFOC-20120311035

PATIENT

DRUGS (2)
  1. FENTANYL-100 [Suspect]
     Indication: PAIN
     Route: 062
  2. FENTANYL-100 [Suspect]
     Route: 062

REACTIONS (3)
  - NAUSEA [None]
  - DRUG PRESCRIBING ERROR [None]
  - CONDITION AGGRAVATED [None]
